FAERS Safety Report 9414768 (Version 1)
Quarter: 2013Q3

REPORT INFORMATION
  Report Type: Spontaneous
  Country: US (occurrence: US)
  Receive Date: 20130723
  Receipt Date: 20130723
  Transmission Date: 20140515
  Serious: Yes (Other)
  Sender: FDA-Public Use
  Company Number: US-PFIZER INC-2013211295

PATIENT
  Age: 56 Year
  Sex: Female
  Weight: 79.37 kg

DRUGS (4)
  1. XALATAN [Suspect]
     Indication: GLAUCOMA
     Dosage: ONE DROP IN EACH EYE, 1X/DAY
     Route: 047
     Dates: start: 1986
  2. XALATAN [Suspect]
     Indication: INTRAOCULAR PRESSURE INCREASED
  3. BETIMOL [Concomitant]
     Indication: GLAUCOMA
     Dosage: ONE DROP IN EACH EYE, 1X/DAY
     Route: 047
  4. BETIMOL [Concomitant]
     Indication: INTRAOCULAR PRESSURE INCREASED

REACTIONS (2)
  - Glucose tolerance impaired [Unknown]
  - Blood cholesterol increased [Unknown]
